FAERS Safety Report 8481799-4 (Version None)
Quarter: 2012Q3

REPORT INFORMATION
  Report Type: 
  Country: None (occurrence: None)
  Receive Date: 20120702
  Receipt Date: 20120625
  Transmission Date: 20120928
  Serious: Yes (Death, Life-Threatening, Hospitalization, Other)
  Sender: FDA-Public Use
  Company Number: BG-CELGENEUS-022-C5013-11052218

PATIENT
  Sex: Female
  Weight: 70.9 kg

DRUGS (17)
  1. FUREUTHONIL [Concomitant]
     Indication: HYPERTENSION
     Dosage: 40 MILLIGRAM
     Route: 048
     Dates: start: 20100101
  2. LENALIDOMIDE [Suspect]
     Dosage: 5 MILLIGRAM
     Route: 048
     Dates: start: 20110427, end: 20110516
  3. CIPROFLOXACIN HYDROCHLORIDE [Suspect]
     Route: 065
     Dates: start: 20110514, end: 20110515
  4. CIPROFLOXACIN HYDROCHLORIDE [Suspect]
     Indication: COUGH
  5. ACETIZAL [Concomitant]
     Dosage: 100 MILLIGRAM
     Route: 065
  6. FRAGMIN [Concomitant]
     Indication: THROMBOPHLEBITIS
     Route: 058
     Dates: start: 20110427
  7. TROXENES [Concomitant]
     Indication: THROMBOPHLEBITIS
     Route: 048
     Dates: start: 20110401
  8. CIPROFLOXACIN HYDROCHLORIDE [Suspect]
  9. RAMIPRIL [Concomitant]
     Indication: HYPERTENSION
     Dosage: 5 MILLIGRAM
     Route: 048
     Dates: start: 20030101, end: 20110519
  10. FUROSEMIDE [Concomitant]
     Dosage: 40 MILLIGRAM
     Route: 065
  11. VIVACE [Concomitant]
     Route: 065
     Dates: start: 20010101, end: 20110519
  12. SPIRONOLACTONE [Concomitant]
     Indication: HYPERTENSION
     Dosage: 25 MILLIGRAM
     Route: 048
     Dates: start: 20100101
  13. ALLOPURINOL [Concomitant]
     Route: 065
     Dates: end: 20110517
  14. SPIRONOLACTONE [Concomitant]
     Indication: ASCITES
     Dosage: 150 MILLIGRAM
     Route: 048
     Dates: start: 20110521
  15. BISOGAMMA [Concomitant]
     Indication: HYPERTENSION
     Dosage: 5 MILLIGRAM
     Route: 048
     Dates: start: 20030101
  16. DEXAMETHASONE ACETATE [Concomitant]
     Dosage: 100 MILLIGRAM
     Route: 048
     Dates: start: 20100101
  17. FUROSEMIDE [Concomitant]
     Indication: ASCITES
     Dosage: 40 MILLIGRAM
     Route: 065
     Dates: start: 20110521

REACTIONS (3)
  - CARDIOPULMONARY FAILURE [None]
  - THROMBOCYTOPENIA [None]
  - HEPATITIS TOXIC [None]
